FAERS Safety Report 6711490-3 (Version None)
Quarter: 2010Q2

REPORT INFORMATION
  Report Type: 
  Country: None (occurrence: None)
  Receive Date: 20100505
  Receipt Date: 20100504
  Transmission Date: 20101027
  Serious: Yes (Hospitalization, Other)
  Sender: FDA-Public Use
  Company Number: US-ROXANE LABORATORIES, INC.-2010-RO-00383RO

PATIENT
  Age: 59 Year
  Sex: Male
  Weight: 59 kg

DRUGS (8)
  1. METHADONE HYDROCHLORIDE [Suspect]
     Indication: FLANK PAIN
     Dosage: 30 MG
     Route: 048
     Dates: start: 20090413, end: 20090620
  2. LACTULOSE [Suspect]
     Indication: CONSTIPATION
  3. SUTENT [Suspect]
     Indication: RENAL CELL CARCINOMA
     Dosage: 37.5 MG
     Route: 048
     Dates: start: 20081125
  4. GEMCITABINE HCL [Suspect]
     Indication: RENAL CELL CARCINOMA
     Route: 042
     Dates: start: 20081125
  5. LIPITOR [Concomitant]
     Dates: start: 20081007, end: 20090521
  6. LISINOPRIL [Concomitant]
     Dates: start: 20081007, end: 20090521
  7. TOPROL-XL [Concomitant]
     Dates: start: 20081007
  8. ASPIRIN [Concomitant]
     Dates: start: 20081007, end: 20090507

REACTIONS (4)
  - CONSTIPATION [None]
  - DRUG INEFFECTIVE [None]
  - FAILURE TO THRIVE [None]
  - PAIN [None]
